FAERS Safety Report 10936093 (Version 1)
Quarter: 2015Q1

REPORT INFORMATION
  Report Type: Spontaneous
  Country: CA (occurrence: CA)
  Receive Date: 20150320
  Receipt Date: 20150320
  Transmission Date: 20150721
  Serious: Yes (Other)
  Sender: FDA-Public Use
  Company Number: CA-GLAXOSMITHKLINE-CA2015GSK036735

PATIENT
  Age: 57 Year
  Sex: Female

DRUGS (7)
  1. CARBOPLATINUM [Suspect]
     Active Substance: CARBOPLATIN
     Indication: MALIGNANT PERITONEAL NEOPLASM
  2. HOMEOPATHIC AGENT (NOS) [Concomitant]
  3. ZOFRAN [Suspect]
     Active Substance: ONDANSETRON HYDROCHLORIDE
     Indication: VOMITING
  4. PACLITAXEL. [Suspect]
     Active Substance: PACLITAXEL
     Indication: MALIGNANT PERITONEAL NEOPLASM
  5. PACLITAXEL. [Suspect]
     Active Substance: PACLITAXEL
     Indication: METASTASES TO OVARY
     Dosage: UNK
     Route: 042
  6. CARBOPLATINUM [Suspect]
     Active Substance: CARBOPLATIN
     Indication: METASTASES TO OVARY
  7. ZOFRAN [Suspect]
     Active Substance: ONDANSETRON HYDROCHLORIDE
     Indication: NAUSEA

REACTIONS (22)
  - Abdominal pain [Unknown]
  - Muscular weakness [Unknown]
  - Nausea [Unknown]
  - Alopecia [Unknown]
  - Dizziness [Unknown]
  - Insomnia [Unknown]
  - Ageusia [Unknown]
  - Asthenia [Unknown]
  - Erythema [Unknown]
  - Fatigue [Unknown]
  - Contusion [Unknown]
  - Decreased appetite [Unknown]
  - Oral candidiasis [Unknown]
  - Thrombocytopenia [Unknown]
  - Anaemia [Unknown]
  - Gait disturbance [Unknown]
  - Hypoaesthesia [Unknown]
  - Pain in extremity [Unknown]
  - Neutropenia [Unknown]
  - Peripheral coldness [Unknown]
  - Constipation [Unknown]
  - Toxicity to various agents [Unknown]
